FAERS Safety Report 4924492-4 (Version None)
Quarter: 2006Q1

REPORT INFORMATION
  Report Type: 
  Country: None (occurrence: None)
  Receive Date: 20060227
  Receipt Date: 20060207
  Transmission Date: 20060701
  Serious: Yes (Other)
  Sender: FDA-Public Use
  Company Number: JP-AVENTIS-200610428JP

PATIENT
  Age: 66 Year
  Sex: Female

DRUGS (8)
  1. AMARYL [Suspect]
     Route: 048
     Dates: start: 20060204
  2. MICARDIS [Concomitant]
  3. OMEPRAL [Concomitant]
  4. NORVASC [Concomitant]
  5. GASMOTIN [Concomitant]
  6. PLETAL [Concomitant]
  7. ADALAT [Concomitant]
  8. PURSENNID [Concomitant]

REACTIONS (2)
  - DEPRESSED LEVEL OF CONSCIOUSNESS [None]
  - HYPOGLYCAEMIA [None]
